FAERS Safety Report 14052208 (Version 1)
Quarter: 2017Q4

REPORT INFORMATION
  Report Type: Spontaneous
  Country: US (occurrence: US)
  Receive Date: 20171006
  Receipt Date: 20171006
  Transmission Date: 20180321
  Serious: No
  Sender: FDA-Public Use
  Company Number: US-PFIZER INC-2017426073

PATIENT
  Age: 16 Year
  Sex: Male

DRUGS (1)
  1. GENOTROPIN [Suspect]
     Active Substance: SOMATROPIN
     Indication: DWARFISM
     Dosage: 1.8 MG, DAILY
     Route: 058
     Dates: start: 201508

REACTIONS (5)
  - Dizziness [Unknown]
  - Drug dose omission [Unknown]
  - Pelvic deformity [Unknown]
  - Back pain [Unknown]
  - Headache [Unknown]
